FAERS Safety Report 9564222 (Version 1)
Quarter: 2013Q3

REPORT INFORMATION
  Report Type: Report from Study
  Country: US (occurrence: US)
  Receive Date: 20130930
  Receipt Date: 20130930
  Transmission Date: 20140515
  Serious: Yes (Hospitalization)
  Sender: FDA-Public Use
  Company Number: US-ALEXION PHARMACEUTICALS INC.-A201302283

PATIENT
  Age: 64 Year
  Sex: Female

DRUGS (2)
  1. SOLIRIS [Suspect]
     Indication: HAEMOLYTIC URAEMIC SYNDROME
     Dosage: UNK
     Route: 042
  2. PREDNISONE [Concomitant]
     Dosage: UNK

REACTIONS (8)
  - Platelet count decreased [Not Recovered/Not Resolved]
  - Cardiac failure congestive [Unknown]
  - Hyperkalaemia [Unknown]
  - Hypertension [Not Recovered/Not Resolved]
  - Renal impairment [Recovering/Resolving]
  - Oedema [Not Recovered/Not Resolved]
  - Abdominal pain [Unknown]
  - Constipation [Unknown]
